FAERS Safety Report 8925772 (Version 2)
Quarter: 2013Q1

REPORT INFORMATION
  Report Type: Spontaneous
  Country: US (occurrence: US)
  Receive Date: 20121126
  Receipt Date: 20130314
  Transmission Date: 20140127
  Serious: Yes (Hospitalization, Other)
  Sender: FDA-Public Use
  Company Number: US-BAYER-2012-120370

PATIENT
  Age: 29 Year
  Sex: Female
  Weight: 67.57 kg

DRUGS (8)
  1. YAZ [Suspect]
     Indication: ACNE
     Dosage: UNK
     Dates: start: 2006, end: 2011
  2. YAZ [Suspect]
     Indication: OVARIAN CYST
  3. YASMIN [Suspect]
     Indication: ACNE
     Dosage: UNK
     Dates: start: 2006, end: 2007
  4. YASMIN [Suspect]
     Indication: OVARIAN CYST
  5. OCELLA [Suspect]
     Indication: ACNE
     Dosage: UNK
     Dates: start: 2000, end: 2001
  6. OCELLA [Suspect]
     Indication: OVARIAN CYST
  7. MOTRIN [Concomitant]
     Indication: HEADACHE
     Dosage: UNK
     Dates: start: 2006, end: 2011
  8. VICODIN [Concomitant]
     Indication: SURGERY
     Dosage: UNK
     Dates: start: 200701, end: 2010

REACTIONS (10)
  - Gallbladder disorder [None]
  - Pain [None]
  - Injury [None]
  - General physical health deterioration [None]
  - Anxiety [None]
  - Emotional distress [None]
  - Pain [None]
  - Peptic ulcer [None]
  - Off label use [None]
  - Cholecystitis acute [None]
